FAERS Safety Report 9493154 (Version 1)
Quarter: 2013Q3

REPORT INFORMATION
  Report Type: Spontaneous
  Country: GB (occurrence: GB)
  Receive Date: 20130902
  Receipt Date: 20130902
  Transmission Date: 20140515
  Serious: Yes (Other)
  Sender: FDA-Public Use
  Company Number: GB-JNJFOC-20130810220

PATIENT
  Age: 17 Year
  Sex: Female
  Weight: 61 kg

DRUGS (3)
  1. IBUPROFEN [Suspect]
     Route: 065
  2. IBUPROFEN [Suspect]
     Indication: PRODUCT USED FOR UNKNOWN INDICATION
     Route: 065
     Dates: start: 20121213
  3. ETHINYLESTRADIOL/NORGESTREL [Concomitant]
     Route: 065
     Dates: start: 20121003

REACTIONS (1)
  - Lip swelling [Recovering/Resolving]
